FAERS Safety Report 11734806 (Version 4)
Quarter: 2016Q4

REPORT INFORMATION
  Report Type: Spontaneous
  Country: US (occurrence: US)
  Receive Date: 20151113
  Receipt Date: 20161205
  Transmission Date: 20170206
  Serious: Yes (Hospitalization, Other)
  Sender: FDA-Public Use
  Company Number: US-PFIZER INC-2014302665

PATIENT
  Age: 66 Year
  Sex: Male
  Weight: 82 kg

DRUGS (6)
  1. PROGRAF [Concomitant]
     Active Substance: TACROLIMUS\TACROLIMUS ANHYDROUS
     Dosage: (1 MONTH BEFORE SURGERY)
  2. RAPAMUNE [Suspect]
     Active Substance: SIROLIMUS
     Dosage: 4 MG, DAILY
  3. RAPAMUNE [Suspect]
     Active Substance: SIROLIMUS
     Dosage: 4 MG, DAILY
  4. RAPAMUNE [Suspect]
     Active Substance: SIROLIMUS
     Dosage: 1 MG, 4X/DAY
     Route: 048
  5. RAPAMUNE [Suspect]
     Active Substance: SIROLIMUS
     Dosage: 4 MG, 1X/DAY (1 MG, 4 DOSAGE FORMS 1X/DAY)
     Dates: start: 20050605
  6. RAPAMUNE [Suspect]
     Active Substance: SIROLIMUS
     Indication: LIVER TRANSPLANT
     Dosage: 3 MG, DAILY
     Route: 048

REACTIONS (3)
  - Product use issue [Unknown]
  - Incisional hernia [Recovered/Resolved]
  - Infection [Unknown]

NARRATIVE: CASE EVENT DATE: 2015
